FAERS Safety Report 24365231 (Version 1)
Quarter: 2024Q3

REPORT INFORMATION
  Report Type: Spontaneous
  Country: US (occurrence: US)
  Receive Date: 20240926
  Receipt Date: 20240926
  Transmission Date: 20241017
  Serious: No
  Sender: PADAGIS
  Company Number: US-PADAGIS-2024PAD01488

PATIENT

DRUGS (1)
  1. BRINZOLAMIDE [Suspect]
     Active Substance: BRINZOLAMIDE
     Indication: Glaucoma
     Dosage: UNK, BID
     Route: 047
     Dates: start: 20240812

REACTIONS (8)
  - Photophobia [Not Recovered/Not Resolved]
  - Eye irritation [Unknown]
  - Incorrect dose administered [Unknown]
  - Inappropriate schedule of product administration [Unknown]
  - Accidental exposure to product [Unknown]
  - Product dispensing issue [Unknown]
  - Device occlusion [Unknown]
  - Device leakage [Unknown]

NARRATIVE: CASE EVENT DATE: 20240814
